FAERS Safety Report 9838914 (Version 3)
Quarter: 2014Q1

REPORT INFORMATION
  Report Type: Report from Study
  Country: JP (occurrence: JP)
  Receive Date: 20140123
  Receipt Date: 20140224
  Transmission Date: 20141002
  Serious: Yes (Death)
  Sender: FDA-Public Use
  Company Number: JP-BRISTOL-MYERS SQUIBB COMPANY-19164995

PATIENT
  Age: 81 Year
  Sex: Female
  Weight: 56 kg

DRUGS (2)
  1. SPRYCEL [Suspect]
     Indication: CHRONIC MYELOID LEUKAEMIA
     Route: 048
     Dates: start: 20130701, end: 20130718
  2. AMLODIN [Concomitant]
     Dosage: TABS
     Route: 048
     Dates: end: 20130725

REACTIONS (2)
  - Cardiac failure [Fatal]
  - Generalised oedema [Fatal]
